FAERS Safety Report 15894488 (Version 1)
Quarter: 2019Q1

REPORT INFORMATION
  Report Type: Spontaneous
  Country: CN (occurrence: CN)
  Receive Date: 20190131
  Receipt Date: 20190131
  Transmission Date: 20190417
  Serious: Yes (Life-Threatening, Other)
  Sender: FDA-Public Use
  Company Number: CN-B.I. PHARMACEUTICALS,INC./RIDGEFIELD-2019-BI-003820

PATIENT
  Age: 84 Year
  Sex: Male
  Weight: 50 kg

DRUGS (1)
  1. PRADAXA [Suspect]
     Active Substance: DABIGATRAN ETEXILATE MESYLATE
     Indication: COAGULOPATHY
     Route: 048
     Dates: start: 20180904, end: 20181216

REACTIONS (1)
  - Coagulopathy [Unknown]

NARRATIVE: CASE EVENT DATE: 20181216
